FAERS Safety Report 17765171 (Version 1)
Quarter: 2020Q2

REPORT INFORMATION
  Report Type: Spontaneous
  Country: US (occurrence: US)
  Receive Date: 20200508
  Receipt Date: 20200508
  Transmission Date: 20200714
  Serious: Yes (Death)
  Sender: FDA-Public Use
  Company Number: None

PATIENT
  Age: 56 Year
  Sex: Female

DRUGS (14)
  1. CLOBAZAM. [Concomitant]
     Active Substance: CLOBAZAM
  2. NIFEDIPINE. [Concomitant]
     Active Substance: NIFEDIPINE
  3. ONDANSETRON [Concomitant]
     Active Substance: ONDANSETRON
  4. FUROSEMIDE. [Concomitant]
     Active Substance: FUROSEMIDE
  5. LOSARTAN. [Concomitant]
     Active Substance: LOSARTAN
  6. PANTOPRAZOLE [Concomitant]
     Active Substance: PANTOPRAZOLE
  7. SMZ/TMP [Concomitant]
     Active Substance: SULFAMETHOXAZOLE\TRIMETHOPRIM
  8. TEMOZOLOMIDE. [Suspect]
     Active Substance: TEMOZOLOMIDE
     Indication: BRAIN NEOPLASM MALIGNANT
     Route: 048
     Dates: start: 20200219
  9. METOLAZONE. [Concomitant]
     Active Substance: METOLAZONE
  10. POT CHLORIDE [Concomitant]
     Active Substance: POTASSIUM CHLORIDE
  11. TORSEMIDE. [Concomitant]
     Active Substance: TORSEMIDE
  12. VIRT-PHOS [Concomitant]
  13. DEXAMETHASON [Concomitant]
     Active Substance: DEXAMETHASONE
  14. METOCLOPRAM [Concomitant]
     Active Substance: METOCLOPRAMIDE

REACTIONS (1)
  - Death [None]
